FAERS Safety Report 4551928-3 (Version None)
Quarter: 2005Q1

REPORT INFORMATION
  Report Type: 
  Country: None (occurrence: None)
  Receive Date: 20050113
  Receipt Date: 20050110
  Transmission Date: 20050727
  Serious: Yes (Hospitalization)
  Sender: FDA-Public Use
  Company Number: 05-01-0039

PATIENT
  Age: 47 Year
  Sex: Male

DRUGS (2)
  1. CLOZAPINE [Suspect]
     Indication: SCHIZOPHRENIA
     Dosage: 24-400MG QD ORAL
     Route: 048
     Dates: start: 19990901, end: 20041122
  2. CHEMOTHERAPY FOR LEUKEMIA [Concomitant]

REACTIONS (1)
  - LEUKAEMIA [None]
